FAERS Safety Report 8074410-8 (Version None)
Quarter: 2012Q1

REPORT INFORMATION
  Report Type: 
  Country: None (occurrence: None)
  Receive Date: 20120126
  Receipt Date: 20120120
  Transmission Date: 20120608
  Serious: Yes (Other)
  Sender: FDA-Public Use
  Company Number: FR-GLAXOSMITHKLINE-B0731730A

PATIENT
  Age: 60 Year
  Sex: Female

DRUGS (7)
  1. IRBESARTAN [Concomitant]
  2. METFORMIN HCL [Concomitant]
  3. NEXIUM [Concomitant]
  4. CALCIUM/VITAMIN D [Concomitant]
  5. ACETAMINOPHEN [Concomitant]
  6. PROMACTA [Suspect]
     Indication: IDIOPATHIC THROMBOCYTOPENIC PURPURA
     Dosage: 50MG PER DAY
     Route: 048
     Dates: start: 20110501
  7. INSULINE [Concomitant]

REACTIONS (7)
  - ALANINE AMINOTRANSFERASE INCREASED [None]
  - GAMMA-GLUTAMYLTRANSFERASE INCREASED [None]
  - TRANSAMINASES INCREASED [None]
  - PLATELET COUNT DECREASED [None]
  - MYALGIA [None]
  - ARTHRALGIA [None]
  - ASPARTATE AMINOTRANSFERASE INCREASED [None]
